FAERS Safety Report 4881700-6 (Version None)
Quarter: 2005Q4

REPORT INFORMATION
  Report Type: 
  Country: None (occurrence: None)
  Receive Date: 20051201
  Receipt Date: 20050720
  Transmission Date: 20060501
  Serious: No
  Sender: FDA-Public Use
  Company Number: 2005PV000567

PATIENT
  Age: 64 Year
  Sex: Female
  Weight: 136.0791 kg

DRUGS (7)
  1. BYETTA [Suspect]
     Indication: DIABETES MELLITUS NON-INSULIN-DEPENDENT
     Dosage: 5 MCG; BID; SC
     Route: 058
     Dates: start: 20050714
  2. SYNTHROID [Concomitant]
  3. FUROSEMIDE [Concomitant]
  4. GLIPIZIDE [Concomitant]
  5. ASPIRIN [Concomitant]
  6. LIPITOR [Concomitant]
  7. ALBUTEROL SULFATE AUTOHALER [Concomitant]

REACTIONS (5)
  - BLOOD GLUCOSE INCREASED [None]
  - DRUG INEFFECTIVE [None]
  - DYSPEPSIA [None]
  - NAUSEA [None]
  - STOMACH DISCOMFORT [None]
